FAERS Safety Report 15853625 (Version 1)
Quarter: 2019Q1

REPORT INFORMATION
  Report Type: Spontaneous
  Country: BE (occurrence: BE)
  Receive Date: 20190122
  Receipt Date: 20190122
  Transmission Date: 20190417
  Serious: Yes (Other)
  Sender: FDA-Public Use
  Company Number: BE-ROCHE-2247214

PATIENT
  Age: 57 Year
  Sex: Female
  Weight: 89.3 kg

DRUGS (2)
  1. VALCYTE [Suspect]
     Active Substance: VALGANCICLOVIR HYDROCHLORIDE
     Indication: CYTOMEGALOVIRUS INFECTION
     Route: 065
     Dates: start: 20180607, end: 20180620
  2. CYMEVENE [Suspect]
     Active Substance: GANCICLOVIR
     Indication: CYTOMEGALOVIRUS INFECTION
     Route: 065
     Dates: start: 20180524, end: 20180607

REACTIONS (1)
  - Cytomegalovirus infection [Not Recovered/Not Resolved]

NARRATIVE: CASE EVENT DATE: 201901
